FAERS Safety Report 21977741 (Version 1)
Quarter: 2023Q1

REPORT INFORMATION
  Report Type: Other
  Country: ZA (occurrence: None)
  Receive Date: 20230210
  Receipt Date: 20230210
  Transmission Date: 20230418
  Serious: Yes (Other)
  Sender: FDA-Public Use
  Company Number: ZA-ROCHE-3277345

PATIENT
  Sex: Female

DRUGS (1)
  1. OCREVUS [Suspect]
     Active Substance: OCRELIZUMAB
     Indication: Multiple sclerosis
     Dosage: THERAFTER EVERY SIX MONTHS
     Route: 041

REACTIONS (10)
  - Demyelination [Unknown]
  - Multiple sclerosis [Unknown]
  - Cervical spinal stenosis [Unknown]
  - Thecal sac compression [Unknown]
  - Gliosis [Unknown]
  - Magnetic resonance imaging spinal abnormal [Unknown]
  - Vertebral foraminal stenosis [Unknown]
  - Vertebral osteophyte [Unknown]
  - Intervertebral disc protrusion [Unknown]
  - Spinal stenosis [Unknown]
